FAERS Safety Report 17802924 (Version 1)
Quarter: 2020Q2

REPORT INFORMATION
  Report Type: Spontaneous
  Country: US (occurrence: US)
  Receive Date: 20200519
  Receipt Date: 20200519
  Transmission Date: 20200714
  Serious: No
  Sender: FDA-Public Use
  Company Number: US-009507513-2005USA006107

PATIENT
  Sex: Female

DRUGS (1)
  1. MIRTAZAPINE. [Suspect]
     Active Substance: MIRTAZAPINE
     Dosage: UNK
     Dates: end: 2000

REACTIONS (1)
  - Dysarthria [Recovered/Resolved]

NARRATIVE: CASE EVENT DATE: 2000
